FAERS Safety Report 4376007-X (Version None)
Quarter: 2004Q2

REPORT INFORMATION
  Report Type: 
  Country: None (occurrence: None)
  Receive Date: 20040609
  Receipt Date: 20040609
  Transmission Date: 20050107
  Serious: Yes (Death)
  Sender: FDA-Public Use
  Company Number: None

PATIENT
  Age: 62 Year
  Sex: Female
  Weight: 95.709 kg

DRUGS (2)
  1. 100 MG PROTAMINE [Suspect]
     Indication: ACTIVATED PARTIAL THROMBOPLASTIN TIME PROLONGED
     Dosage: 0953 500 MG PROTAMINE, 1015 100MG PROTAMINE IV
     Route: 042
     Dates: start: 20040325
  2. INTRAORTIC BALLON PUMP [Concomitant]

REACTIONS (2)
  - CIRCULATORY COLLAPSE [None]
  - POST PROCEDURAL COMPLICATION [None]
